FAERS Safety Report 13697621 (Version 1)
Quarter: 2017Q2

REPORT INFORMATION
  Report Type: Spontaneous
  Country: US (occurrence: US)
  Receive Date: 20170628
  Receipt Date: 20170628
  Transmission Date: 20170830
  Serious: No
  Sender: FDA-Public Use
  Company Number: US-BAYER-2017-122127

PATIENT
  Age: 72 Year
  Sex: Male
  Weight: 63 kg

DRUGS (6)
  1. ATORVASTATIN [Concomitant]
     Active Substance: ATORVASTATIN
  2. BAYER LOW DOSE [Concomitant]
     Active Substance: ASPIRIN
  3. GLIMEPIRIDE. [Concomitant]
     Active Substance: GLIMEPIRIDE
  4. LISINOPRIL. [Concomitant]
     Active Substance: LISINOPRIL
  5. MIRALAX [Suspect]
     Active Substance: POLYETHYLENE GLYCOL 3350
     Indication: GASTROINTESTINAL DISORDER
     Dosage: 1 DF(17.9 OZ), UNK
     Route: 048
  6. CENTRUM [Concomitant]
     Active Substance: VITAMINS

REACTIONS (6)
  - Incorrect dose administered [Unknown]
  - Frequent bowel movements [Recovered/Resolved]
  - Frequent bowel movements [Unknown]
  - Drug prescribing error [Unknown]
  - Incorrect dose administered [Unknown]
  - Inappropriate prescribing [Unknown]

NARRATIVE: CASE EVENT DATE: 20170621
